FAERS Safety Report 7125506-6 (Version None)
Quarter: 2010Q4

REPORT INFORMATION
  Report Type: 
  Country: None (occurrence: None)
  Receive Date: 20101129
  Receipt Date: 20101118
  Transmission Date: 20110411
  Serious: Yes (Other)
  Sender: FDA-Public Use
  Company Number: NL-ROCHE-738490

PATIENT
  Sex: Male

DRUGS (6)
  1. AVASTIN [Suspect]
     Dosage: FORM: INFUSION
     Route: 042
     Dates: start: 20100916
  2. AVASTIN [Suspect]
     Dosage: SECOND INFUSION, DRUG DISCONTINUED ON AN UNSPECIFIED DATE IN OCTOBER 2010.
     Route: 042
     Dates: start: 20101007
  3. CHEMOTHERAPY NOS [Concomitant]
  4. CHEMOTHERAPY NOS [Concomitant]
  5. CHEMOTHERAPY NOS [Concomitant]
     Dosage: 3RD COURSE OF ANTINEOPLASTIC AGENT NOS WITHOUT BEVACIZUMAB
     Dates: start: 20101028
  6. CHEMOTHERAPY NOS [Concomitant]
     Dosage: 4TH COURSE OF ANTINEOPLASTIC AGENT NOS WITHOUT BEVACIZUMAB
     Dates: start: 20101119

REACTIONS (1)
  - HYPERTRIGLYCERIDAEMIA [None]
